FAERS Safety Report 8504363-7 (Version None)
Quarter: 2012Q3

REPORT INFORMATION
  Report Type: 
  Country: None (occurrence: None)
  Receive Date: 20120711
  Receipt Date: 20120703
  Transmission Date: 20120928
  Serious: Yes (Hospitalization)
  Sender: FDA-Public Use
  Company Number: US-B.I. PHARMACEUTICALS,INC./RIDGEFIELD-2012-BP-14937BP

PATIENT
  Sex: Male

DRUGS (8)
  1. PRADAXA [Suspect]
     Dosage: 150 MG
     Route: 048
     Dates: start: 20120101
  2. EPLERENONE [Concomitant]
     Indication: FLUID RETENTION
     Dosage: 25 MG
     Route: 048
  3. PRADAXA [Suspect]
     Indication: ATRIAL FIBRILLATION
     Dosage: 300 MG
     Route: 048
     Dates: start: 20100101
  4. METALAZONE [Concomitant]
     Indication: FLUID RETENTION
  5. TOPROL-XL [Concomitant]
     Indication: CARDIAC DISORDER
     Dosage: 25 MG
     Route: 048
  6. PRILOSEC [Concomitant]
     Indication: GASTROOESOPHAGEAL REFLUX DISEASE
     Dosage: 20 MG
     Route: 048
  7. LASIX [Concomitant]
     Indication: FLUID RETENTION
     Dosage: 80 MG
     Route: 048
  8. ENALAPRIL MALEATE [Concomitant]
     Indication: CARDIAC DISORDER

REACTIONS (3)
  - ASCITES [None]
  - HERNIA [None]
  - CONTUSION [None]
